FAERS Safety Report 5282889-X (Version None)
Quarter: 2007Q2

REPORT INFORMATION
  Report Type: 
  Country: None (occurrence: None)
  Receive Date: 20070402
  Receipt Date: 20070320
  Transmission Date: 20071010
  Serious: Yes (Other)
  Sender: FDA-Public Use
  Company Number: PHBS2006IE19853

PATIENT
  Age: 12 Year
  Sex: Male

DRUGS (2)
  1. SIMULECT [Suspect]
     Indication: RENAL TRANSPLANT
  2. CELLCEPT [Suspect]
     Indication: RENAL TRANSPLANT

REACTIONS (6)
  - ANGIOPATHY [None]
  - C-REACTIVE PROTEIN INCREASED [None]
  - COMPLICATIONS OF TRANSPLANT SURGERY [None]
  - LIFE SUPPORT [None]
  - PULMONARY OEDEMA [None]
  - PYREXIA [None]
